FAERS Safety Report 5183769-0 (Version None)
Quarter: 2006Q4

REPORT INFORMATION
  Report Type: 
  Country: None (occurrence: None)
  Receive Date: 20061220
  Receipt Date: 20060201
  Transmission Date: 20070319
  Serious: No
  Sender: FDA-Public Use
  Company Number: US-GLAXOSMITHKLINE-A0592250A

PATIENT
  Age: 47 Year
  Sex: Female

DRUGS (2)
  1. NICODERM CQ [Suspect]
     Dates: start: 20060130
  2. PROGESTERONE [Concomitant]

REACTIONS (8)
  - CHILLS [None]
  - DISCOMFORT [None]
  - INTENTIONAL DRUG MISUSE [None]
  - MENSTRUATION DELAYED [None]
  - MIGRAINE [None]
  - NERVOUSNESS [None]
  - NICOTINE DEPENDENCE [None]
  - TREMOR [None]
